FAERS Safety Report 8056683-0 (Version None)
Quarter: 2012Q1

REPORT INFORMATION
  Report Type: 
  Country: None (occurrence: None)
  Receive Date: 20120119
  Receipt Date: 20120113
  Transmission Date: 20120608
  Serious: Yes (Hospitalization)
  Sender: FDA-Public Use
  Company Number: GB-ABBOTT-10P-167-0624934-00

PATIENT
  Sex: Male
  Weight: 90 kg

DRUGS (8)
  1. METHOTREXATE [Concomitant]
     Indication: POLYCHONDRITIS
  2. ADALIMUMAB [Suspect]
     Indication: POLYCHONDRITIS
     Route: 058
     Dates: start: 20090401, end: 20090501
  3. PREDNISOLONE [Concomitant]
     Indication: PRODUCT USED FOR UNKNOWN INDICATION
     Route: 048
  4. AZATHIOPRINE [Concomitant]
     Indication: POLYCHONDRITIS
     Route: 048
  5. BISOPROLOL FUMARATE [Concomitant]
     Indication: HYPERTENSION
     Route: 048
  6. ASPIRIN [Concomitant]
     Indication: CARDIOVASCULAR EVENT PROPHYLAXIS
     Route: 048
  7. CANDESARTAN CILEXETIL [Concomitant]
     Indication: HYPERTENSION
     Route: 048
  8. ALENDRONATE SODIUM [Concomitant]
     Indication: MINERAL SUPPLEMENTATION
     Route: 048

REACTIONS (3)
  - INFECTION [None]
  - ACUTE FEBRILE NEUTROPHILIC DERMATOSIS [None]
  - MYELODYSPLASTIC SYNDROME [None]
